FAERS Safety Report 12677635 (Version 1)
Quarter: 2016Q3

REPORT INFORMATION
  Report Type: Report from Study
  Country: BR (occurrence: BR)
  Receive Date: 20160823
  Receipt Date: 20160823
  Transmission Date: 20161109
  Serious: Yes (Other)
  Sender: FDA-Public Use
  Company Number: BR-JNJFOC-20160506370

PATIENT
  Age: 57 Year
  Sex: Female

DRUGS (5)
  1. REMICADE [Suspect]
     Active Substance: INFLIXIMAB
     Indication: RHEUMATOID ARTHRITIS
     Dosage: 2 DOSAGE FORM
     Route: 042
     Dates: start: 20160309
  2. REMICADE [Suspect]
     Active Substance: INFLIXIMAB
     Indication: RHEUMATOID ARTHRITIS
     Route: 042
     Dates: start: 20120610
  3. PREDNISONE. [Concomitant]
     Active Substance: PREDNISONE
     Route: 065
  4. REMICADE [Suspect]
     Active Substance: INFLIXIMAB
     Indication: RHEUMATOID ARTHRITIS
     Dosage: 2 DOSAGE FORM
     Route: 042
     Dates: start: 2014
  5. MELOXICAM. [Concomitant]
     Active Substance: MELOXICAM
     Route: 065

REACTIONS (4)
  - Localised infection [Recovering/Resolving]
  - Headache [Recovered/Resolved]
  - Hand fracture [Not Recovered/Not Resolved]
  - Limb injury [Unknown]

NARRATIVE: CASE EVENT DATE: 201608
